FAERS Safety Report 8917965 (Version 1)
Quarter: 2012Q4

REPORT INFORMATION
  Report Type: 
  Country: US (occurrence: US)
  Receive Date: 20121120
  Receipt Date: 20121120
  Transmission Date: 20130627
  Serious: Yes (Other)
  Sender: FDA-Public Use
  Company Number: US-BAXTER-2012BAX024396

PATIENT
  Age: 24 Year
  Sex: Female

DRUGS (1)
  1. CYCLOPHOSPHAMIDE FOR INJECTION, USP [Suspect]
     Indication: ANTI-N-METHYL-D-ASPARTATE RECEPTOR ANTIBODY

REACTIONS (2)
  - Maternal exposure before pregnancy [Recovered/Resolved]
  - Premature rupture of membranes [Recovered/Resolved]
